FAERS Safety Report 18851632 (Version 1)
Quarter: 2021Q1

REPORT INFORMATION
  Report Type: Spontaneous
  Country: US (occurrence: US)
  Receive Date: 20210204
  Receipt Date: 20210204
  Transmission Date: 20210420
  Serious: Yes (Hospitalization)
  Sender: FDA-Public Use
  Company Number: None

PATIENT
  Age: 64 Year
  Sex: Female
  Weight: 69.4 kg

DRUGS (16)
  1. MULTI FOR HER [Concomitant]
  2. OXALIPLATIN. [Concomitant]
     Active Substance: OXALIPLATIN
  3. VALACYCLOVIR [Concomitant]
     Active Substance: VALACYCLOVIR HYDROCHLORIDE
  4. ZIRABEV [Concomitant]
     Active Substance: BEVACIZUMAB-BVZR
  5. DRONABINOL. [Concomitant]
     Active Substance: DRONABINOL
  6. LOVAZA [Concomitant]
     Active Substance: OMEGA-3-ACID ETHYL ESTERS
  7. DRONABINOL. [Concomitant]
     Active Substance: DRONABINOL
  8. OMEPRAZOLE. [Concomitant]
     Active Substance: OMEPRAZOLE
  9. SYMBICORT [Concomitant]
     Active Substance: BUDESONIDE\FORMOTEROL FUMARATE DIHYDRATE
  10. VITAMIN D3 [Concomitant]
     Active Substance: CHOLECALCIFEROL
  11. AMLODIPINE [Concomitant]
     Active Substance: AMLODIPINE BESYLATE
  12. CAPECITABINE. [Suspect]
     Active Substance: CAPECITABINE
     Indication: RECTAL CANCER
     Route: 048
     Dates: start: 20210125, end: 20210201
  13. CHOLESTOFF [Concomitant]
  14. OMEGA 3 500 [Concomitant]
  15. TRAMADOL. [Concomitant]
     Active Substance: TRAMADOL
  16. ZIRABEV [Concomitant]
     Active Substance: BEVACIZUMAB-BVZR

REACTIONS (1)
  - Blood sodium decreased [None]

NARRATIVE: CASE EVENT DATE: 20210201
